FAERS Safety Report 5581792-5 (Version None)
Quarter: 2008Q1

REPORT INFORMATION
  Report Type: 
  Country: None (occurrence: None)
  Receive Date: 20080104
  Receipt Date: 20071220
  Transmission Date: 20080703
  Serious: Yes (Hospitalization)
  Sender: FDA-Public Use
  Company Number: US-AMGEN-US257884

PATIENT
  Sex: Female

DRUGS (1)
  1. KINERET [Suspect]
     Indication: RHEUMATOID ARTHRITIS

REACTIONS (3)
  - ARTHRALGIA [None]
  - DRUG INEFFECTIVE [None]
  - RHEUMATOID ARTHRITIS [None]
